FAERS Safety Report 5558053-3 (Version None)
Quarter: 2007Q4

REPORT INFORMATION
  Report Type: 
  Country: None (occurrence: None)
  Receive Date: 20071214
  Receipt Date: 20071129
  Transmission Date: 20080405
  Serious: Yes (Other)
  Sender: FDA-Public Use
  Company Number: GB-RANBAXY-2007RR-11781

PATIENT

DRUGS (4)
  1. SIMVASTATIN [Suspect]
     Indication: BLOOD CHOLESTEROL INCREASED
     Dosage: 40 MG, QD
     Dates: start: 20040101, end: 20070101
  2. DISPERSIBLE ASPIRIN 75MG TABLETS BP [Concomitant]
     Dosage: 75 MG, QD
     Route: 048
  3. BENDROFLUAZIDE [Concomitant]
     Dosage: 2.5 MG, QD
     Route: 048
  4. VALSARTAN [Concomitant]
     Dosage: 80 MG, QD
     Route: 048

REACTIONS (4)
  - ANXIETY [None]
  - DEPRESSION [None]
  - FATIGUE [None]
  - THIRST [None]
